FAERS Safety Report 5213268-9 (Version None)
Quarter: 2007Q1

REPORT INFORMATION
  Report Type: 
  Country: None (occurrence: None)
  Receive Date: 20070117
  Receipt Date: 20070117
  Transmission Date: 20070707
  Serious: Yes (Other)
  Sender: FDA-Public Use
  Company Number: None

PATIENT
  Sex: Male
  Weight: 72.5755 kg

DRUGS (1)
  1. FLOMAX [Suspect]
     Indication: BENIGN PROSTATIC HYPERPLASIA
     Dosage: 0.4 MG DAY PO
     Route: 048
     Dates: start: 20060901, end: 20061101

REACTIONS (5)
  - ABNORMAL FAECES [None]
  - COLONIC POLYP [None]
  - DRUG INEFFECTIVE [None]
  - FAECES DISCOLOURED [None]
  - PRECANCEROUS CELLS PRESENT [None]
